FAERS Safety Report 6693792-2 (Version None)
Quarter: 2010Q2

REPORT INFORMATION
  Report Type: 
  Country: None (occurrence: None)
  Receive Date: 20100423
  Receipt Date: 20100412
  Transmission Date: 20101027
  Serious: Yes (Other)
  Sender: FDA-Public Use
  Company Number: JP-PFIZER INC-2010049641

PATIENT
  Age: 39 Year
  Sex: Female

DRUGS (2)
  1. ZOLOFT [Suspect]
     Dosage: UNK
     Route: 048
  2. DESYREL [Suspect]
     Dosage: UNK
     Route: 048

REACTIONS (1)
  - MACULAR DEGENERATION [None]
